FAERS Safety Report 22032386 (Version 1)
Quarter: 2023Q1

REPORT INFORMATION
  Report Type: Spontaneous
  Country: US (occurrence: US)
  Receive Date: 20230224
  Receipt Date: 20230224
  Transmission Date: 20230418
  Serious: Yes (Other)
  Sender: FDA-Public Use
  Company Number: US-STRIDES ARCOLAB LIMITED-2023SP002568

PATIENT
  Age: 49 Year
  Sex: Male

DRUGS (7)
  1. FLUCYTOSINE [Suspect]
     Active Substance: FLUCYTOSINE
     Indication: Antifungal treatment
     Dosage: UNK
     Route: 048
     Dates: start: 20200317, end: 20200428
  2. AMPHOTERICIN B [Suspect]
     Active Substance: AMPHOTERICIN B
     Indication: Antifungal treatment
     Dosage: UNK
     Route: 042
     Dates: start: 20191122, end: 20200108
  3. AMPHOTERICIN B [Suspect]
     Active Substance: AMPHOTERICIN B
     Dosage: UNK
     Route: 042
     Dates: start: 20200317, end: 20200428
  4. MICAFUNGIN [Concomitant]
     Active Substance: MICAFUNGIN
     Indication: Antifungal treatment
     Dosage: UNK
     Route: 042
     Dates: start: 20170627
  5. MICAFUNGIN [Concomitant]
     Active Substance: MICAFUNGIN
     Dosage: UNK
     Route: 042
     Dates: start: 20191101, end: 20191122
  6. MICAFUNGIN [Concomitant]
     Active Substance: MICAFUNGIN
     Dosage: UNK
     Route: 042
     Dates: start: 20200226
  7. POSACONAZOLE [Concomitant]
     Active Substance: POSACONAZOLE
     Indication: Antifungal treatment
     Dosage: UNK
     Route: 048
     Dates: start: 20190108

REACTIONS (1)
  - Nephropathy toxic [Unknown]

NARRATIVE: CASE EVENT DATE: 20200401
